FAERS Safety Report 24929079 (Version 1)
Quarter: 2025Q1

REPORT INFORMATION
  Report Type: Spontaneous
  Country: US (occurrence: None)
  Receive Date: 20250204
  Receipt Date: 20250204
  Transmission Date: 20250408
  Serious: Yes (unspecified)
  Sender: FDA-CTU
  Company Number: None

PATIENT
  Age: 59 Year
  Sex: Female
  Weight: 121 kg

DRUGS (2)
  1. TIRZEPATIDE [Suspect]
     Active Substance: TIRZEPATIDE
     Indication: Obesity
     Dates: start: 20240717, end: 20240826
  2. TIRZEPATIDE [Suspect]
     Active Substance: TIRZEPATIDE
     Dates: start: 20240826, end: 20240909

REACTIONS (4)
  - Diarrhoea [None]
  - Gastrooesophageal reflux disease [None]
  - Condition aggravated [None]
  - Enteritis [None]

NARRATIVE: CASE EVENT DATE: 20240903
